FAERS Safety Report 9041382 (Version 1)
Quarter: 2013Q1

REPORT INFORMATION
  Report Type: Spontaneous
  Country: US (occurrence: None)
  Receive Date: 20130125
  Receipt Date: 20130125
  Transmission Date: 20140127
  Serious: No
  Sender: FDA-Public Use
  Company Number: None

PATIENT
  Sex: Male

DRUGS (2)
  1. DILANTIN 100 MG 100 MG [Suspect]
     Indication: EPILEPSY
     Dosage: 390MG  QHS  PO
     Route: 048
     Dates: start: 2000
  2. DILANTIN 30MG 30MG [Suspect]
     Indication: EPILEPSY
     Dosage: 390MG  QHS  PO
     Dates: start: 2000

REACTIONS (1)
  - No adverse event [None]
